FAERS Safety Report 6346681-7 (Version None)
Quarter: 2009Q3

REPORT INFORMATION
  Report Type: 
  Country: None (occurrence: None)
  Receive Date: 20090904
  Receipt Date: 20090824
  Transmission Date: 20100115
  Serious: Yes (Hospitalization, Other)
  Sender: FDA-Public Use
  Company Number: 2009AP003448

PATIENT
  Age: 51 Year
  Sex: Female

DRUGS (16)
  1. RISPERIDONE [Suspect]
     Indication: SCHIZOAFFECTIVE DISORDER
     Dosage: 3 MG;PO;BID
     Route: 048
     Dates: start: 20070730
  2. AMITRIPTYLINE HYDROCHLORIDE [Suspect]
     Indication: DEPRESSION
     Dosage: 150 MG;QD PO
     Route: 048
     Dates: start: 20051101
  3. FUROSEMIDE [Suspect]
     Indication: JOINT SWELLING
     Dosage: 20 MG;PO
     Route: 048
     Dates: start: 20060901, end: 20090709
  4. IBUPROFEN [Suspect]
     Indication: PAIN
     Dosage: 400 MG;PO;TID
     Route: 048
     Dates: start: 20060301
  5. DIHYDROCODEINE COMPOUND [Concomitant]
  6. ISPAGHULA HUSK (ISPAGHULA HUSK) [Concomitant]
  7. LACTULOSE [Concomitant]
  8. LANSOPRAZOLE [Concomitant]
  9. EICOSAPENTAENOIC ACID (FISH OIL, HYDROGENATED) [Concomitant]
  10. DOCOSAHEXANOIC ACID (DOCOSAHEXANOIC ACID) [Concomitant]
  11. MACROGOL (MACROGOL) [Concomitant]
  12. POTASSIUM CHLORIDE [Concomitant]
  13. SODIUM CHLORIDE 0.9% [Concomitant]
  14. SODIUM BICARBONATE IN PLASTIC CONTAINER [Concomitant]
  15. PARACETAMOL (PARACETAMOL) [Concomitant]
  16. VALPROIC ACID [Concomitant]

REACTIONS (6)
  - BLOOD OSMOLARITY DECREASED [None]
  - BLOOD SODIUM DECREASED [None]
  - BURNING SENSATION [None]
  - JOINT SWELLING [None]
  - PAIN [None]
  - SCHIZOAFFECTIVE DISORDER [None]
